FAERS Safety Report 12691092 (Version 1)
Quarter: 2016Q3

REPORT INFORMATION
  Report Type: Spontaneous
  Country: US (occurrence: US)
  Receive Date: 20160826
  Receipt Date: 20160826
  Transmission Date: 20161109
  Serious: Yes (Hospitalization, Other)
  Sender: FDA-Public Use
  Company Number: US-SAOL THERAPEUTICS-2016SAO00317

PATIENT
  Age: 13 Year
  Sex: Male
  Weight: 46 kg

DRUGS (1)
  1. BACLOFEN. [Suspect]
     Active Substance: BACLOFEN
     Indication: MUSCLE SPASTICITY
     Dosage: 1600 ?G, \DAY
     Route: 037

REACTIONS (5)
  - Device occlusion [Unknown]
  - Arachnoiditis [Unknown]
  - Muscle spasticity [Recovering/Resolving]
  - Seizure [Unknown]
  - Muscle release [Unknown]

NARRATIVE: CASE EVENT DATE: 2015
